FAERS Safety Report 4748977-9 (Version None)
Quarter: 2005Q3

REPORT INFORMATION
  Report Type: 
  Country: None (occurrence: None)
  Receive Date: 20050819
  Receipt Date: 20050516
  Transmission Date: 20060218
  Serious: Yes (Hospitalization, Disabling)
  Sender: FDA-Public Use
  Company Number: US-MERCK-0505USA01960

PATIENT
  Age: 46 Year
  Sex: Male
  Weight: 100 kg

DRUGS (3)
  1. VIOXX [Suspect]
     Indication: INFLAMMATION
     Route: 048
     Dates: start: 20030201, end: 20040601
  2. MOTRIN [Concomitant]
     Indication: BACK PAIN
     Route: 065
     Dates: start: 19870101
  3. LISINOPRIL [Concomitant]
     Route: 065

REACTIONS (5)
  - BLOOD CHOLESTEROL INCREASED [None]
  - CHEST PAIN [None]
  - HYPERTENSION [None]
  - LUNG DISORDER [None]
  - MYOCARDIAL INFARCTION [None]
